FAERS Safety Report 13499442 (Version 1)
Quarter: 2017Q2

REPORT INFORMATION
  Report Type: Spontaneous
  Country: DE (occurrence: DE)
  Receive Date: 20170501
  Receipt Date: 20170501
  Transmission Date: 20170830
  Serious: Yes (Other)
  Sender: FDA-Public Use
  Company Number: DE-AMGEN-DEUSP2017063873

PATIENT
  Age: 64 Year

DRUGS (7)
  1. RESTEX [Concomitant]
     Active Substance: BENSERAZIDE
     Dosage: UNK
     Dates: start: 2017
  2. DEXAMETHASONE. [Concomitant]
     Active Substance: DEXAMETHASONE
     Indication: PLASMA CELL MYELOMA
     Dosage: 25 MG, (DAY 1, 8, 15, 22)
     Dates: start: 20170123
  3. CARFILZOMIB [Suspect]
     Active Substance: CARFILZOMIB
     Indication: PLASMA CELL MYELOMA
     Dosage: 20 MG/M2, (DAY 1, 2, 8, 9, 15 AND 16) - INITIAL 20 MG/M2, OVER TIME 27 MG/M2
     Route: 065
     Dates: start: 20170123
  4. METOPROLOL. [Concomitant]
     Active Substance: METOPROLOL
     Dosage: UNK
     Dates: start: 2017
  5. LENALIDOMIDE [Concomitant]
     Active Substance: LENALIDOMIDE
     Indication: PLASMA CELL MYELOMA
     Dosage: 25 MG, (DAY 1 TO 21)
     Dates: start: 20170123
  6. L THYROXIN [Concomitant]
     Active Substance: LEVOTHYROXINE SODIUM
     Dosage: UNK
     Dates: start: 2017
  7. FILGRASTIM [Concomitant]
     Active Substance: FILGRASTIM
     Dosage: UNK

REACTIONS (10)
  - Bone marrow infiltration [Unknown]
  - Tricuspid valve incompetence [Unknown]
  - Cytopenia [Unknown]
  - Aortic valve incompetence [Unknown]
  - Thrombocytopenia [Unknown]
  - Left ventricular hypertrophy [Unknown]
  - Bronchitis [Unknown]
  - Leukopenia [Unknown]
  - Diastolic dysfunction [Unknown]
  - C-reactive protein increased [Unknown]

NARRATIVE: CASE EVENT DATE: 2017
